FAERS Safety Report 6111261-5 (Version None)
Quarter: 2009Q1

REPORT INFORMATION
  Report Type: 
  Country: None (occurrence: None)
  Receive Date: 20090311
  Receipt Date: 20090304
  Transmission Date: 20090719
  Serious: Yes (Other)
  Sender: FDA-Public Use
  Company Number: IE-AVENTIS-200910906GDDC

PATIENT
  Sex: Female

DRUGS (8)
  1. LANTUS [Suspect]
     Route: 058
     Dates: start: 20060301, end: 20081201
  2. LANTUS [Suspect]
     Dosage: FREQUENCY: BEFORE MEALS
     Route: 058
     Dates: start: 20081201
  3. LANTUS [Suspect]
     Route: 058
  4. AUTOPEN INSULIN INJECTION PEN [Suspect]
  5. APIDRA [Suspect]
     Dosage: DOSE: 7 UNITS/6 UNITS/7 UNITS
     Route: 058
     Dates: start: 20060901, end: 20081201
  6. APIDRA [Suspect]
     Route: 058
     Dates: start: 20081201
  7. APIDRA [Suspect]
     Dosage: DOSE: 7 UNITS/6 UNITS/7 UNITS; FREQUENCY: BEFORE MEALS
     Route: 058
  8. AUTOPEN INSULIN INJECTION PEN [Suspect]

REACTIONS (6)
  - HYPERGLYCAEMIA [None]
  - HYPOGLYCAEMIA [None]
  - KETOACIDOSIS [None]
  - PRODUCT QUALITY ISSUE [None]
  - STRESS [None]
  - WRONG DRUG ADMINISTERED [None]
